FAERS Safety Report 6265154-3 (Version None)
Quarter: 2009Q3

REPORT INFORMATION
  Report Type: 
  Country: None (occurrence: None)
  Receive Date: 20090708
  Receipt Date: 20090629
  Transmission Date: 20100115
  Serious: Yes (Hospitalization)
  Sender: FDA-Public Use
  Company Number: D0062117A

PATIENT
  Age: 45 Year
  Sex: Male

DRUGS (7)
  1. WELLBUTRIN XL [Suspect]
     Dosage: PER DAY/ORAL
     Route: 048
     Dates: start: 20081111, end: 20081118
  2. OLANZAPINE [Suspect]
     Dosage: PER DAY/ORAL
     Route: 048
     Dates: start: 20080101
  3. DALMADORM [Concomitant]
  4. EZETIMIBE + SIMVASTATIN [Concomitant]
  5. LORAZEPAM [Concomitant]
  6. REBOXETINE [Concomitant]
  7. CITALOPRAM HYDROBROMIDE [Concomitant]

REACTIONS (2)
  - APPETITE DISORDER [None]
  - WEIGHT INCREASED [None]
